FAERS Safety Report 5015082-6 (Version None)
Quarter: 2006Q2

REPORT INFORMATION
  Report Type: 
  Country: None (occurrence: None)
  Receive Date: 20060426
  Receipt Date: 20060204
  Transmission Date: 20061013
  Serious: No
  Sender: FDA-Public Use
  Company Number: 219570

PATIENT
  Age: 53 Year
  Sex: Female

DRUGS (1)
  1. XOLAIR [Suspect]
     Indication: DRUG USE FOR UNKNOWN INDICATION
     Dosage: 300, 1/MONTH, SUBCUTANEOUS
     Route: 058
     Dates: start: 20050405, end: 20051001

REACTIONS (2)
  - RASH [None]
  - URTICARIA [None]
